FAERS Safety Report 16859997 (Version 1)
Quarter: 2019Q3

REPORT INFORMATION
  Report Type: Spontaneous
  Country: IN (occurrence: IN)
  Receive Date: 20190927
  Receipt Date: 20190927
  Transmission Date: 20191005
  Serious: Yes (Other)
  Sender: FDA-Public Use
  Company Number: IN-BAUSCH-BL-2019-054411

PATIENT
  Age: 41 Year
  Sex: Male

DRUGS (1)
  1. FLUOCINOLONE ACETONIDE. [Suspect]
     Active Substance: FLUOCINOLONE ACETONIDE
     Indication: AUTOIMMUNE UVEITIS
     Dosage: INTRAVITREAL IMPLANT; FIVE YEARS PRIOR
     Route: 050

REACTIONS (1)
  - Pseudophakodonesis [Recovered/Resolved]
